FAERS Safety Report 9649225 (Version 1)
Quarter: 2013Q4

REPORT INFORMATION
  Report Type: Spontaneous
  Country: US (occurrence: US)
  Receive Date: 20131028
  Receipt Date: 20131028
  Transmission Date: 20140711
  Serious: Yes (Death, Other)
  Sender: FDA-Public Use
  Company Number: PHHY2013US116646

PATIENT
  Age: 68 Year
  Sex: Female

DRUGS (3)
  1. GLYBURIDE [Suspect]
     Indication: TYPE 2 DIABETES MELLITUS
     Dosage: 10 MG, DAILY
  2. METFORMIN [Concomitant]
     Indication: TYPE 2 DIABETES MELLITUS
  3. INSULIN [Concomitant]

REACTIONS (5)
  - Road traffic accident [Fatal]
  - Hypoglycaemia [Recovering/Resolving]
  - Confusional state [Unknown]
  - Disorientation [Unknown]
  - Glycosylated haemoglobin increased [Unknown]
